FAERS Safety Report 8539344-0 (Version None)
Quarter: 2012Q3

REPORT INFORMATION
  Report Type: 
  Country: None (occurrence: None)
  Receive Date: 20120726
  Receipt Date: 20110727
  Transmission Date: 20120928
  Serious: No
  Sender: FDA-Public Use
  Company Number: US-ASTRAZENECA-2011SE44867

PATIENT
  Age: 62 Year
  Sex: Male

DRUGS (4)
  1. ARICEPT [Concomitant]
  2. CINNAMON [Concomitant]
  3. SEROQUEL [Suspect]
     Indication: DEMENTIA ALZHEIMER'S TYPE
     Route: 048
     Dates: start: 20090101
  4. SEROQUEL [Suspect]
     Indication: PARKINSON'S DISEASE
     Route: 048
     Dates: start: 20090101

REACTIONS (4)
  - DRUG PRESCRIBING ERROR [None]
  - DRUG DOSE OMISSION [None]
  - INSOMNIA [None]
  - FATIGUE [None]
